FAERS Safety Report 15094326 (Version 2)
Quarter: 2019Q2

REPORT INFORMATION
  Report Type: Spontaneous
  Country: IT (occurrence: IT)
  Receive Date: 20180630
  Receipt Date: 20190430
  Transmission Date: 20190711
  Serious: Yes (Hospitalization, Other)
  Sender: FDA-Public Use
  Company Number: IT-AUROBINDO-AUR-APL-2018-033125

PATIENT

DRUGS (13)
  1. PURSENNIDE (SENNA ALEXANDRINA LEAF) [Concomitant]
     Active Substance: SENNA LEAF
     Indication: PRODUCT USED FOR UNKNOWN INDICATION
     Dosage: 2 DOSAGE FORM, CYCLICAL
     Route: 048
  2. FERRO-GRAD [Concomitant]
     Active Substance: FERROUS SULFATE
     Indication: PRODUCT USED FOR UNKNOWN INDICATION
     Dosage: 1 DOSAGE FORM, CYCLICAL
     Route: 048
  3. VALPINAX [Concomitant]
     Active Substance: ANISOTROPINE METHYLBROMIDE\DIAZEPAM
     Indication: PRODUCT USED FOR UNKNOWN INDICATION
     Dosage: 20 MILLIGRAM, CYCLICAL
     Route: 048
  4. DELORAZEPAM [Suspect]
     Active Substance: DELORAZEPAM
     Dosage: 1 DOSAGE FORM, TOTAL
     Route: 048
     Dates: start: 20180424, end: 20180424
  5. DIBASE [Concomitant]
     Active Substance: CHOLECALCIFEROL
     Indication: PRODUCT USED FOR UNKNOWN INDICATION
     Dosage: 25 KILO-INTERNATIONAL UNIT
     Route: 048
  6. SAMYR [Concomitant]
     Active Substance: ADEMETIONINE
     Indication: DEPRESSION
     Dosage: 200 MILLIGRAM, CYCLICAL
     Route: 048
  7. DELORAZEPAM [Suspect]
     Active Substance: DELORAZEPAM
     Indication: PRODUCT USED FOR UNKNOWN INDICATION
     Dosage: 5 DOSAGE FORM, IN TOTAL
     Route: 048
     Dates: start: 20180424, end: 20180424
  8. XANAX [Suspect]
     Active Substance: ALPRAZOLAM
     Indication: PRODUCT USED FOR UNKNOWN INDICATION
     Dosage: 6 DOSAGE FORM, IN TOTAL
     Route: 048
     Dates: start: 20180424, end: 20180424
  9. ESOMEPRAZOLE SODIUM. [Concomitant]
     Active Substance: ESOMEPRAZOLE SODIUM
     Indication: PRODUCT USED FOR UNKNOWN INDICATION
     Dosage: 40 MILLIGRAM, CYCLICAL
     Route: 048
  10. FLURAZEPAM HYDROCHLORIDE. [Concomitant]
     Active Substance: FLURAZEPAM HYDROCHLORIDE
     Indication: PRODUCT USED FOR UNKNOWN INDICATION
     Dosage: 30 MILLIGRAM, CYCLICAL
     Route: 048
  11. LEVOPRAID [Concomitant]
     Indication: DEPRESSION
     Dosage: 25 MILLIGRAM, CYCLICAL
     Route: 048
  12. LYRICA [Concomitant]
     Active Substance: PREGABALIN
     Indication: PRODUCT USED FOR UNKNOWN INDICATION
     Dosage: 2 DOSAGE FORM, CYCLICAL
     Route: 048
  13. CITALOPRAM [Suspect]
     Active Substance: CITALOPRAM HYDROBROMIDE
     Indication: PRODUCT USED FOR UNKNOWN INDICATION
     Dosage: 1 DOSAGE FORM, IN TOTAL
     Route: 048
     Dates: start: 20180424, end: 20180424

REACTIONS (1)
  - Drug abuse [Recovering/Resolving]

NARRATIVE: CASE EVENT DATE: 20180424
